FAERS Safety Report 4391232-X (Version None)
Quarter: 2004Q2

REPORT INFORMATION
  Report Type: 
  Country: None (occurrence: None)
  Receive Date: 20040621
  Receipt Date: 20031107
  Transmission Date: 20050107
  Serious: Yes (Other)
  Sender: FDA-Public Use
  Company Number: USA-2002-0002691

PATIENT
  Age: 39 Year
  Sex: Female

DRUGS (1)
  1. OXYCONTIN [Suspect]
     Indication: PAIN
     Dosage: 40 MG, TID, ORAL
     Route: 048
     Dates: start: 19990924, end: 20020906

REACTIONS (5)
  - DRUG DEPENDENCE [None]
  - EMOTIONAL DISTRESS [None]
  - FEELING HOT [None]
  - OEDEMA PERIPHERAL [None]
  - PAIN [None]
